FAERS Safety Report 7304725-X (Version None)
Quarter: 2011Q1

REPORT INFORMATION
  Report Type: 
  Country: None (occurrence: None)
  Receive Date: 20110222
  Receipt Date: 20110215
  Transmission Date: 20110831
  Serious: Yes (Other)
  Sender: FDA-Public Use
  Company Number: US-PFIZER INC-2010171051

PATIENT
  Sex: Female
  Weight: 113 kg

DRUGS (5)
  1. PREMPHASE (PREMARIN;CYCRIN 14/14) [Suspect]
     Indication: OFF LABEL USE
     Dosage: .625 MG, 1X/DAY
     Route: 048
     Dates: start: 19980101
  2. PREMPHASE (PREMARIN;CYCRIN 14/14) [Suspect]
     Indication: DEPRESSION
  3. GLIPIZIDE [Concomitant]
     Dosage: 10 MG, 2X/DAY
  4. QUINAPRIL [Concomitant]
     Indication: CARDIAC DISORDER
     Dosage: 20 MG, 2X/DAY
  5. METFORMIN [Concomitant]
     Indication: DIABETES MELLITUS
     Dosage: 500 MG, 3X/DAY

REACTIONS (2)
  - WEIGHT DECREASED [None]
  - DIABETES MELLITUS [None]
